FAERS Safety Report 4804433-0 (Version None)
Quarter: 2005Q4

REPORT INFORMATION
  Report Type: 
  Country: None (occurrence: None)
  Receive Date: 20051020
  Receipt Date: 20051010
  Transmission Date: 20060501
  Serious: Yes (Hospitalization)
  Sender: FDA-Public Use
  Company Number: FR-GLAXOSMITHKLINE-B0396624A

PATIENT
  Age: 27 Year
  Sex: Male
  Weight: 175 kg

DRUGS (1)
  1. TELZIR [Suspect]
     Indication: HIV INFECTION
     Route: 048
     Dates: end: 20050619

REACTIONS (1)
  - CONVULSION [None]
